FAERS Safety Report 15120550 (Version 2)
Quarter: 2018Q3

REPORT INFORMATION
  Report Type: Spontaneous
  Country: US (occurrence: US)
  Receive Date: 20180709
  Receipt Date: 20180730
  Transmission Date: 20181010
  Serious: Yes (Other)
  Sender: FDA-Public Use
  Company Number: US-COOPERSURGICAL, INC.-US-2018CPS032395

PATIENT

DRUGS (2)
  1. FEM?HRT [Concomitant]
     Indication: MENOPAUSAL SYMPTOMS
     Dosage: UNK
     Route: 065
  2. PARAGARD T 380A [Suspect]
     Active Substance: COPPER
     Indication: CONTRACEPTION
     Dosage: UNK
     Route: 015
     Dates: start: 200801

REACTIONS (8)
  - Device issue [Recovered/Resolved]
  - Pain [Unknown]
  - Device breakage [Recovered/Resolved]
  - Vaginal laceration [Unknown]
  - Complication of device removal [Not Recovered/Not Resolved]
  - Device difficult to use [Not Recovered/Not Resolved]
  - Device use issue [Unknown]
  - Haemorrhage [Unknown]

NARRATIVE: CASE EVENT DATE: 2016
